FAERS Safety Report 7163330-9 (Version None)
Quarter: 2010Q4

REPORT INFORMATION
  Report Type: 
  Country: None (occurrence: None)
  Receive Date: 20101215
  Receipt Date: 20100329
  Transmission Date: 20110411
  Serious: Yes (Other)
  Sender: FDA-Public Use
  Company Number: US-PFIZER INC-2010028407

PATIENT
  Sex: Male
  Weight: 73.469 kg

DRUGS (5)
  1. LYRICA [Suspect]
     Indication: NEURALGIA
     Dosage: 75 MG, 3X/DAY
     Route: 048
  2. LYRICA [Suspect]
     Dosage: 100 MG, 3X/DAY
     Route: 048
     Dates: end: 20100201
  3. PERCOCET [Concomitant]
     Indication: PAIN
     Dosage: 15/325MG, 3X/DAY
     Dates: end: 20100101
  4. FLUOXETINE [Concomitant]
     Indication: SLEEP DISORDER
     Dosage: 10 MG, 1X/DAY
     Dates: start: 20100201
  5. ELAVIL [Concomitant]
     Dosage: 100 MG, 1X/DAY
     Dates: start: 20090101

REACTIONS (2)
  - AGITATION [None]
  - WITHDRAWAL SYNDROME [None]
